FAERS Safety Report 17143606 (Version 2)
Quarter: 2020Q1

REPORT INFORMATION
  Report Type: Spontaneous
  Country: IQ (occurrence: IQ)
  Receive Date: 20191211
  Receipt Date: 20200218
  Transmission Date: 20200409
  Serious: Yes (Other)
  Sender: FDA-Public Use
  Company Number: IQ-AMGEN-IRQSP2019206001

PATIENT
  Age: 37 Year

DRUGS (1)
  1. ENBREL [Suspect]
     Active Substance: ETANERCEPT
     Indication: PRODUCT USED FOR UNKNOWN INDICATION
     Dosage: 50 MILLIGRAM, 2 TIMES/WK
     Route: 065

REACTIONS (1)
  - Dermatitis exfoliative generalised [Recovering/Resolving]
